FAERS Safety Report 9230776 (Version 3)
Quarter: 2013Q2

REPORT INFORMATION
  Report Type: Spontaneous
  Country: IE (occurrence: IE)
  Receive Date: 20130415
  Receipt Date: 20130517
  Transmission Date: 20140414
  Serious: Yes (Hospitalization)
  Sender: FDA-Public Use
  Company Number: IE-BAYER-2013-046185

PATIENT
  Age: 72 Year
  Sex: Female
  Weight: 90 kg

DRUGS (2)
  1. GADOVIST [Suspect]
     Indication: NUCLEAR MAGNETIC RESONANCE IMAGING BRAIN
     Dosage: 8 ML, ONCE
     Route: 042
     Dates: start: 20130409, end: 20130409
  2. GADOVIST [Suspect]
     Indication: CENTRAL NERVOUS SYSTEM LESION

REACTIONS (2)
  - Unresponsive to stimuli [Recovered/Resolved]
  - Confusional state [Recovered/Resolved]
